FAERS Safety Report 6757692-1 (Version None)
Quarter: 2010Q2

REPORT INFORMATION
  Report Type: 
  Country: None (occurrence: None)
  Receive Date: 20100604
  Receipt Date: 20100604
  Transmission Date: 20101027
  Serious: No
  Sender: FDA-Public Use
  Company Number: None

PATIENT
  Sex: Male
  Weight: 96 kg

DRUGS (2)
  1. CISPLATIN [Suspect]
     Dosage: 165 MG
     Dates: end: 20100430
  2. GEMCITABINE HYDROCHLORIDE [Suspect]
     Dosage: 2640 MG
     Dates: end: 20100430

REACTIONS (1)
  - NEUTROPHIL COUNT DECREASED [None]
